FAERS Safety Report 9648753 (Version 3)
Quarter: 2013Q4

REPORT INFORMATION
  Report Type: Spontaneous
  Country: US (occurrence: US)
  Receive Date: 20131028
  Receipt Date: 20131111
  Transmission Date: 20140711
  Serious: Yes (Other)
  Sender: FDA-Public Use
  Company Number: US-SANOFI-AVENTIS-2012SA005183

PATIENT
  Age: 77 Year
  Sex: Male
  Weight: 82 kg

DRUGS (19)
  1. LANTUS SOLOSTAR [Suspect]
     Dosage: DOSE:35 UNIT(S)
     Route: 058
  2. LANTUS SOLOSTAR [Suspect]
     Dosage: DOSE:22 UNIT(S)
     Route: 065
  3. LANTUS SOLOSTAR [Suspect]
     Dosage: 20 UNITS (2) TIMES PER DAY DOSE:42 UNIT(S)
     Route: 051
     Dates: end: 20131010
  4. NOVOLOG [Suspect]
  5. SOLOSTAR [Concomitant]
  6. STOOL SOFTENER [Concomitant]
  7. CENTRUM [Concomitant]
  8. DULCOLAX [Concomitant]
     Dosage: 2 PILLA ODD DAYS
  9. OMEPRAZOLE [Concomitant]
  10. OCUVITE LUTEIN [Concomitant]
     Dosage: FREQUENCY- 3 PER WEEK
  11. AMOX [Concomitant]
     Indication: NASOPHARYNGITIS
     Dosage: FROM- MAY 30
  12. AMOX [Concomitant]
     Indication: LOCALISED INFECTION
     Dosage: FROM- MAY 30
  13. CIPROFLOXACIN [Concomitant]
     Indication: NASOPHARYNGITIS
     Dosage: FROM- MAY 30
  14. CIPROFLOXACIN [Concomitant]
     Indication: LOCALISED INFECTION
     Dosage: FROM- MAY 30
  15. LEVOFLOXACIN [Concomitant]
     Indication: NASOPHARYNGITIS
     Dosage: FROM- MAY 30
  16. LEVOFLOXACIN [Concomitant]
     Indication: LOCALISED INFECTION
     Dosage: FROM- MAY 30
  17. VITAMIN B12 [Concomitant]
     Dosage: 1 EA, 3 TIMES PER WEEK
  18. VITAMIN C [Concomitant]
     Dosage: 1 EA, 3 TIMES PER WEEK
  19. VITAMIN D [Concomitant]
     Dosage: 1 EA, 3 TIMES PER WEEK

REACTIONS (15)
  - Abasia [Not Recovered/Not Resolved]
  - Fatigue [Not Recovered/Not Resolved]
  - Asthenia [Unknown]
  - Dry eye [Not Recovered/Not Resolved]
  - Visual acuity reduced [Not Recovered/Not Resolved]
  - Headache [Not Recovered/Not Resolved]
  - Acne [Not Recovered/Not Resolved]
  - Myalgia [Not Recovered/Not Resolved]
  - Bone pain [Not Recovered/Not Resolved]
  - Arthralgia [Not Recovered/Not Resolved]
  - Rash erythematous [Not Recovered/Not Resolved]
  - Erythema [Not Recovered/Not Resolved]
  - Pruritus [Not Recovered/Not Resolved]
  - Injection site haemorrhage [Not Recovered/Not Resolved]
  - Blood glucose abnormal [Not Recovered/Not Resolved]
